FAERS Safety Report 9378269 (Version 2)
Quarter: 2013Q3

REPORT INFORMATION
  Report Type: Spontaneous
  Country: US (occurrence: US)
  Receive Date: 20130701
  Receipt Date: 20130722
  Transmission Date: 20140515
  Serious: Yes (Hospitalization)
  Sender: FDA-Public Use
  Company Number: US-GILEAD-2013-0078136

PATIENT
  Sex: Male

DRUGS (3)
  1. LETAIRIS [Suspect]
     Indication: PULMONARY HYPERTENSION
     Dosage: 10 MG, QD
     Dates: start: 20100303
  2. LETAIRIS [Suspect]
     Indication: PULMONARY FIBROSIS
  3. SILDENAFIL [Concomitant]

REACTIONS (1)
  - Spinal fracture [Unknown]
